FAERS Safety Report 8577132-X (Version None)
Quarter: 2012Q3

REPORT INFORMATION
  Report Type: 
  Country: None (occurrence: None)
  Receive Date: 20120807
  Receipt Date: 20120807
  Transmission Date: 20120928
  Serious: Yes (Other)
  Sender: FDA-Public Use
  Company Number: SG-BAYER-2012-079532

PATIENT
  Age: 33 Year
  Sex: Female

DRUGS (2)
  1. ASPIRIN [Suspect]
  2. IBUPROFEN [Suspect]

REACTIONS (1)
  - ANGIOEDEMA [None]
